FAERS Safety Report 6402115-5 (Version None)
Quarter: 2009Q4

REPORT INFORMATION
  Report Type: 
  Country: None (occurrence: None)
  Receive Date: 20091013
  Receipt Date: 20090928
  Transmission Date: 20100525
  Serious: Yes (Other)
  Sender: FDA-Public Use
  Company Number: 8052900

PATIENT
  Age: 49 Year
  Sex: Female

DRUGS (5)
  1. HYDROCODONE BITARTRATE AND ACETAMINOPHEN [Suspect]
  2. VALSARTAN [Concomitant]
  3. LEVOTHYROXINE /00068002/ [Concomitant]
  4. LORATADINE [Concomitant]
  5. BUTALBITAL ACETAMINOPHEN AND CAFFEINE [Concomitant]

REACTIONS (9)
  - BRAIN HERNIATION [None]
  - INAPPROPRIATE ANTIDIURETIC HORMONE SECRETION [None]
  - MEDIASTINAL MASS [None]
  - METASTASES TO CENTRAL NERVOUS SYSTEM [None]
  - NAUSEA [None]
  - NECROSIS [None]
  - NO THERAPEUTIC RESPONSE [None]
  - PITUITARY ENLARGEMENT [None]
  - THYMOMA MALIGNANT [None]
